FAERS Safety Report 4382748-0 (Version None)
Quarter: 2004Q2

REPORT INFORMATION
  Report Type: 
  Country: None (occurrence: None)
  Receive Date: 20040617
  Receipt Date: 20040609
  Transmission Date: 20050107
  Serious: Yes (Other)
  Sender: FDA-Public Use
  Company Number: 2003025014

PATIENT
  Age: 67 Year
  Sex: Female

DRUGS (4)
  1. LIPITOR [Suspect]
     Indication: BLOOD CHOLESTEROL INCREASED
     Dosage: 10 MG (1 IN 1 D) ORAL
     Route: 048
     Dates: end: 20040101
  2. NIZATIDINE [Concomitant]
  3. GEMFIBROZIL [Concomitant]
  4. VALSARTAN (VALSARTAN) [Concomitant]

REACTIONS (10)
  - APHASIA [None]
  - ASTHENIA [None]
  - CHOKING SENSATION [None]
  - DRUG INEFFECTIVE [None]
  - DYSPHAGIA [None]
  - HYPERSENSITIVITY [None]
  - PHARMACEUTICAL PRODUCT COUNTERFEIT [None]
  - REFUSAL OF TREATMENT BY PATIENT [None]
  - VIRAL INFECTION [None]
  - VOMITING [None]
